FAERS Safety Report 11673128 (Version 1)
Quarter: 2015Q4

REPORT INFORMATION
  Report Type: Spontaneous
  Country: US (occurrence: None)
  Receive Date: 20151026
  Receipt Date: 20151026
  Transmission Date: 20160304
  Serious: Yes (Life-Threatening, Hospitalization)
  Sender: FDA-Public Use
  Company Number: None

PATIENT
  Age: 82 Year
  Sex: Male
  Weight: 99.5 kg

DRUGS (1)
  1. OLANZAPINE. [Suspect]
     Active Substance: OLANZAPINE
     Indication: DEMENTIA
     Route: 048
     Dates: start: 20140130, end: 20140202

REACTIONS (5)
  - Pyrexia [None]
  - Pneumonia aspiration [None]
  - International normalised ratio increased [None]
  - Pneumonia [None]
  - Cerebral haemorrhage [None]

NARRATIVE: CASE EVENT DATE: 20140201
